FAERS Safety Report 8297340-5 (Version None)
Quarter: 2012Q2

REPORT INFORMATION
  Report Type: 
  Country: None (occurrence: None)
  Receive Date: 20120417
  Receipt Date: 20110404
  Transmission Date: 20120825
  Serious: Yes (Congenital Anomaly, Other)
  Sender: FDA-Public Use
  Company Number: 20120177

PATIENT
  Sex: Female

DRUGS (6)
  1. TOPIRAMATE [Suspect]
     Indication: AFFECTIVE DISORDER
     Dosage: 550 MG AT LMP
  2. TOPIRAMATE [Suspect]
     Indication: EPILEPSY
     Dosage: 550 MG AT LMP
  3. LAMOTRIGINE [Suspect]
     Indication: AFFECTIVE DISORDER
     Dosage: 300 MG,
  4. LAMOTRIGINE [Suspect]
     Indication: EPILEPSY
     Dosage: 300 MG,
  5. PHENYTOIN SODIUM [Suspect]
     Indication: AFFECTIVE DISORDER
     Dosage: 200 MG
  6. PHENYTOIN SODIUM [Suspect]
     Indication: EPILEPSY
     Dosage: 200 MG

REACTIONS (1)
  - MATERNAL EXPOSURE DURING PREGNANCY [None]
